FAERS Safety Report 15155415 (Version 2)
Quarter: 2019Q4

REPORT INFORMATION
  Report Type: Spontaneous
  Country: GB (occurrence: GB)
  Receive Date: 20180717
  Receipt Date: 20191120
  Transmission Date: 20200122
  Serious: Yes (Other)
  Sender: FDA-Public Use
  Company Number: GB-TEVA-2018-GB-924957

PATIENT
  Age: 49 Year
  Sex: Female
  Weight: 58.96 kg

DRUGS (8)
  1. CERAZETTE [Concomitant]
     Route: 065
  2. RIBOFLAVIN [Concomitant]
     Active Substance: RIBOFLAVIN
     Route: 065
  3. RIZATRIPTAN BENZOATE. [Suspect]
     Active Substance: RIZATRIPTAN BENZOATE
     Indication: MIGRAINE
     Route: 048
     Dates: start: 20180528, end: 20180528
  4. MAGNESIUM OXIDE, LIGHT [Concomitant]
     Route: 065
  5. IBUPROFEN LYSINE. [Concomitant]
     Active Substance: IBUPROFEN LYSINE
     Route: 065
  6. FROVATRIPTAN. [Concomitant]
     Active Substance: FROVATRIPTAN
     Route: 065
  7. IBUPROFEN. [Concomitant]
     Active Substance: IBUPROFEN
     Route: 065
  8. AMITRIPTYLINE [Concomitant]
     Active Substance: AMITRIPTYLINE
     Route: 065

REACTIONS (3)
  - Depression [Recovered/Resolved with Sequelae]
  - Anxiety [Recovered/Resolved with Sequelae]
  - Mood altered [Recovered/Resolved with Sequelae]

NARRATIVE: CASE EVENT DATE: 20180528
